FAERS Safety Report 11785851 (Version 1)
Quarter: 2015Q4

REPORT INFORMATION
  Report Type: Report from Study
  Country: US (occurrence: US)
  Receive Date: 20151130
  Receipt Date: 20151130
  Transmission Date: 20160305
  Serious: Yes (Hospitalization, Other)
  Sender: FDA-Public Use
  Company Number: US-GILEAD-2015-0184997

PATIENT
  Age: 80 Year
  Sex: Female

DRUGS (1)
  1. AMBRISENTAN [Suspect]
     Active Substance: AMBRISENTAN
     Indication: PRODUCT USED FOR UNKNOWN INDICATION
     Dosage: 5 MG, QD
     Route: 065
     Dates: start: 20150303

REACTIONS (2)
  - Hepatic cirrhosis [Not Recovered/Not Resolved]
  - Localised intraabdominal fluid collection [Not Recovered/Not Resolved]

NARRATIVE: CASE EVENT DATE: 20151118
